FAERS Safety Report 26117111 (Version 2)
Quarter: 2025Q4

REPORT INFORMATION
  Report Type: Report from Study
  Country: US (occurrence: US)
  Receive Date: 20251203
  Receipt Date: 20251230
  Transmission Date: 20260118
  Serious: Yes (Other)
  Sender: TAKEDA
  Company Number: US-TAKEDA-2025TUS109149

PATIENT
  Age: 41 Year
  Sex: Female

DRUGS (1)
  1. VEDOLIZUMAB [Suspect]
     Active Substance: VEDOLIZUMAB
     Indication: Product used for unknown indication
     Dosage: UNK

REACTIONS (9)
  - Haematochezia [Unknown]
  - Mucous stools [Unknown]
  - Defaecation urgency [Unknown]
  - Faeces discoloured [Unknown]
  - Frequent bowel movements [Unknown]
  - Diarrhoea [Unknown]
  - Faeces soft [Unknown]
  - Abdominal pain [Unknown]
  - Arthralgia [Unknown]
